FAERS Safety Report 10564490 (Version 2)
Quarter: 2014Q4

REPORT INFORMATION
  Report Type: Spontaneous
  Country: US (occurrence: US)
  Receive Date: 20141104
  Receipt Date: 20141104
  Transmission Date: 20150529
  Serious: No
  Sender: FDA-Public Use
  Company Number: US-MALLINCKRODT-T201401507

PATIENT
  Age: 80 Year
  Sex: Female
  Weight: 95.24 kg

DRUGS (4)
  1. FENTANYL TRANSDERMAL SYSTEM [Suspect]
     Active Substance: FENTANYL
     Indication: NEUROPATHY PERIPHERAL
     Dosage: 25 MCG/HR, Q48H
     Route: 062
     Dates: start: 20140305, end: 20140305
  2. MORPHINE [Concomitant]
     Active Substance: MORPHINE
     Indication: NEUROPATHY PERIPHERAL
     Dosage: 15 MG, BID
     Route: 048
     Dates: start: 2013
  3. OPANA [Concomitant]
     Active Substance: OXYMORPHONE HYDROCHLORIDE
     Indication: NEUROPATHY PERIPHERAL
     Dosage: 5 MG, 4-5 DAILY
     Route: 048
     Dates: start: 2013
  4. FENTANYL. [Concomitant]
     Active Substance: FENTANYL
     Route: 062

REACTIONS (7)
  - Drug ineffective [Recovered/Resolved]
  - Neuropathy peripheral [None]
  - Confusional state [Recovered/Resolved]
  - Product substitution issue [None]
  - Drug withdrawal syndrome [Recovered/Resolved]
  - Anxiety [Recovered/Resolved]
  - Anger [Recovered/Resolved]

NARRATIVE: CASE EVENT DATE: 20140305
